FAERS Safety Report 22071530 (Version 2)
Quarter: 2023Q2

REPORT INFORMATION
  Report Type: Spontaneous
  Country: CA (occurrence: CA)
  Receive Date: 20230307
  Receipt Date: 20230526
  Transmission Date: 20230722
  Serious: Yes (Death)
  Sender: FDA-Public Use
  Company Number: CA-HLS-202300538

PATIENT
  Sex: Male
  Weight: 75 kg

DRUGS (1)
  1. CLOZAPINE [Suspect]
     Active Substance: CLOZAPINE
     Indication: Product used for unknown indication
     Dosage: TABLETS DOSAGE FORM
     Route: 065

REACTIONS (1)
  - Squamous cell carcinoma [Fatal]
